FAERS Safety Report 21976484 (Version 2)
Quarter: 2023Q1

REPORT INFORMATION
  Report Type: Report from Study
  Country: CH (occurrence: CH)
  Receive Date: 20230210
  Receipt Date: 20230213
  Transmission Date: 20230418
  Serious: Yes (Death, Life-Threatening, Other)
  Sender: FDA-Public Use
  Company Number: CH-ABBVIE-4301601

PATIENT
  Age: 89 Year
  Sex: Female

DRUGS (3)
  1. CARBIDOPA\LEVODOPA [Suspect]
     Active Substance: CARBIDOPA\LEVODOPA
     Indication: Parkinson^s disease
     Dosage: MD: 3.7 ML, CRD: 3.5 ML/H, CRN: 2.6 ML/H, ED: 1.7 ML
     Route: 050
     Dates: start: 20220412, end: 20230208
  2. CARBIDOPA\LEVODOPA [Suspect]
     Active Substance: CARBIDOPA\LEVODOPA
     Route: 050
     Dates: start: 20191112
  3. MORPHINE [Concomitant]
     Active Substance: MORPHINE
     Indication: Product used for unknown indication
     Dates: end: 20230208

REACTIONS (3)
  - Terminal state [Fatal]
  - Unresponsive to stimuli [Recovered/Resolved]
  - Coma [Fatal]

NARRATIVE: CASE EVENT DATE: 20230201
